FAERS Safety Report 5303366-3 (Version None)
Quarter: 2007Q2

REPORT INFORMATION
  Report Type: 
  Country: None (occurrence: None)
  Receive Date: 20070420
  Receipt Date: 20070413
  Transmission Date: 20071010
  Serious: Yes (Hospitalization)
  Sender: FDA-Public Use
  Company Number: 2007CG00606

PATIENT
  Age: 90 Year
  Sex: Male

DRUGS (6)
  1. NEXIUM [Suspect]
     Route: 048
  2. MEPRONIZINE [Suspect]
     Route: 048
  3. ALLOPURINOL [Suspect]
     Route: 048
  4. EUPRESSYL [Suspect]
     Route: 048
  5. LASIX [Suspect]
     Route: 048
  6. AMLOR [Suspect]
     Route: 048

REACTIONS (2)
  - OEDEMA PERIPHERAL [None]
  - RENAL FAILURE [None]
